FAERS Safety Report 9012450 (Version 2)
Quarter: 2013Q2

REPORT INFORMATION
  Report Type: Spontaneous
  Country: US (occurrence: None)
  Receive Date: 20120518
  Receipt Date: 20120820
  Transmission Date: 20140414
  Serious: No
  Sender: FDA-Public Use
  Company Number: 1000029968

PATIENT
  Age: 65 Year
  Sex: Female

DRUGS (4)
  1. VIIBRYD [Suspect]
     Indication: MAJOR DEPRESSION
     Dosage: 20 MG (20 MG, 1 IN 1 D)
     Dates: start: 20120314, end: 20120320
  2. VIIBRYD [Suspect]
     Indication: MAJOR DEPRESSION
     Dosage: 20 MG, 1 IN 1 D
     Route: 048
     Dates: start: 20120321, end: 20120330
  3. ABILIFY [Concomitant]
  4. NUVIGIL [Concomitant]

REACTIONS (1)
  - Joint swelling [None]
